FAERS Safety Report 21235941 (Version 1)
Quarter: 2022Q3

REPORT INFORMATION
  Report Type: Spontaneous
  Country: IT (occurrence: IT)
  Receive Date: 20220822
  Receipt Date: 20220822
  Transmission Date: 20221027
  Serious: Yes (Other)
  Sender: FDA-Public Use
  Company Number: None

PATIENT
  Age: 71 Year
  Sex: Male

DRUGS (6)
  1. PEMBROLIZUMAB [Suspect]
     Active Substance: PEMBROLIZUMAB
     Indication: Lung adenocarcinoma stage IV
     Dosage: 200 MILLIGRAM, Q3W (EVERY 21 DAYS)
     Route: 042
     Dates: start: 20220202, end: 20220518
  2. CARBOPLATIN [Concomitant]
     Active Substance: CARBOPLATIN
     Dosage: 490 MILLIGRAM, Q3W (EVERY 21 DAYS)
     Route: 042
     Dates: start: 20220202, end: 20220404
  3. FOLINIUM [Concomitant]
     Dosage: 5 MILLIGRAM, QD
     Route: 048
  4. PEMETREXED [Concomitant]
     Active Substance: PEMETREXED
     Dosage: 750 MILLIGRAM
     Route: 042
  5. LAMIVUDINE [Concomitant]
     Active Substance: LAMIVUDINE
     Dosage: 100 MILLIGRAM, QD
     Route: 048
  6. FENTANYL [Concomitant]
     Active Substance: FENTANYL
     Dosage: 25 MILLIGRAM, 72 HOURS
     Route: 062

REACTIONS (4)
  - Arthralgia [Recovered/Resolved]
  - Oedema peripheral [Recovered/Resolved]
  - Immune-mediated arthritis [Recovered/Resolved]
  - Pain in extremity [Recovered/Resolved]

NARRATIVE: CASE EVENT DATE: 20220608
